FAERS Safety Report 8575640-9 (Version None)
Quarter: 2012Q3

REPORT INFORMATION
  Report Type: 
  Country: None (occurrence: None)
  Receive Date: 20120807
  Receipt Date: 20120803
  Transmission Date: 20120928
  Serious: Yes (Death, Hospitalization, Other)
  Sender: FDA-Public Use
  Company Number: PHEH2005US014206

PATIENT
  Sex: Male
  Weight: 84.354 kg

DRUGS (44)
  1. NORTRIPTYLINE HCL [Concomitant]
  2. AGGRENOX [Concomitant]
  3. AREDIA [Suspect]
     Indication: MULTIPLE MYELOMA
     Dosage: 90 MG, QMO
     Dates: start: 19991006
  4. OXYCONTIN [Concomitant]
     Dosage: 20 MG, UNK
  5. FLOMAX [Concomitant]
     Dosage: 0.4 MG, BID
     Dates: start: 20030630
  6. PROTON PUMP INHIBITORS [Concomitant]
     Route: 048
  7. CLARINEX                                /USA/ [Concomitant]
  8. LASIX [Concomitant]
  9. PREDNISONE [Concomitant]
  10. LORAZEPAM [Concomitant]
     Dosage: 0.5 MG, Q6H
     Dates: start: 20030630
  11. DECADRON PHOSPHATE [Concomitant]
     Dosage: 60 MG, UNK
  12. HEPARIN [Concomitant]
  13. DILTIAZEM [Concomitant]
  14. AMBIEN [Concomitant]
  15. OXYCODONE HCL [Concomitant]
     Dosage: 20 MG, Q12H
     Dates: start: 20040702
  16. TAMSULOSIN HYDROCHLORIDE [Concomitant]
  17. ALLOPURINOL [Concomitant]
     Dosage: 300 MG, QD
     Dates: start: 20030630
  18. ASPIRIN [Concomitant]
     Dosage: 81 MG, QD
     Dates: start: 20071024
  19. VITAMIN E [Concomitant]
  20. MULTI-VITAMINS [Concomitant]
  21. REVLIMID [Concomitant]
     Dosage: 10 MG, QMO
  22. CLARITIN [Concomitant]
  23. CHEMOTHERAPEUTICS NOS [Concomitant]
  24. REGLAN [Concomitant]
  25. FLUTICASONE PROPIONATE [Concomitant]
  26. SIMVASTATIN [Concomitant]
  27. VITAMIN D [Concomitant]
  28. PRILOSEC [Concomitant]
  29. AVODART [Concomitant]
  30. COUMADIN [Concomitant]
  31. LENALIDOMIDE [Concomitant]
     Dosage: 25 MG, QD
     Route: 048
  32. PREVACID [Concomitant]
     Dosage: 30 MG, BID
     Dates: start: 20040603
  33. PROCHLORPERAZINE MALEATE [Concomitant]
     Dosage: 10 MG, BID
     Dates: start: 20051019
  34. DEXAMETHASONE [Concomitant]
     Dosage: 40 MG, QD
     Route: 048
  35. DEXAMETHASONE [Concomitant]
     Dosage: 16 MG, QD
  36. LOVAZA [Concomitant]
  37. COMPAZINE [Concomitant]
  38. TYLENOL [Concomitant]
  39. HYDROCODONE BITARTRATE [Concomitant]
  40. LENALIDOMIDE [Concomitant]
     Dosage: 10 MG, QD
  41. PAMIDRONATE DISODIUM [Concomitant]
  42. LEVAQUIN [Concomitant]
     Dosage: 500 MG, QD
     Route: 048
  43. ICAPS [Concomitant]
  44. CALCIUM [Concomitant]

REACTIONS (27)
  - HYPERCHOLESTEROLAEMIA [None]
  - ESSENTIAL THROMBOCYTHAEMIA [None]
  - TRICUSPID VALVE INCOMPETENCE [None]
  - OSTEOPENIA [None]
  - LEUKOCYTOSIS [None]
  - CEREBROVASCULAR ACCIDENT [None]
  - BLINDNESS UNILATERAL [None]
  - DYSPEPSIA [None]
  - FALL [None]
  - CORONARY ARTERY DISEASE [None]
  - AORTIC VALVE INCOMPETENCE [None]
  - INTERVERTEBRAL DISC SPACE NARROWING [None]
  - ASTIGMATISM [None]
  - AGE-RELATED MACULAR DEGENERATION [None]
  - CHEST PAIN [None]
  - AORTIC CALCIFICATION [None]
  - MONOCLONAL GAMMOPATHY [None]
  - ARTERIOSCLEROSIS [None]
  - HAEMATOMA [None]
  - VISUAL ACUITY REDUCED [None]
  - RENAL FAILURE CHRONIC [None]
  - CUTIS LAXA [None]
  - MYOPIA [None]
  - PRESBYOPIA [None]
  - DYSPHAGIA [None]
  - COMPRESSION FRACTURE [None]
  - HAEMATEMESIS [None]
